FAERS Safety Report 23699788 (Version 2)
Quarter: 2024Q2

REPORT INFORMATION
  Report Type: Spontaneous
  Country: JP (occurrence: JP)
  Receive Date: 20240403
  Receipt Date: 20240411
  Transmission Date: 20240716
  Serious: Yes (Hospitalization)
  Sender: FDA-Public Use
  Company Number: JP-DSJP-DSJ-2024-114114

PATIENT

DRUGS (1)
  1. DENOSUMAB [Suspect]
     Active Substance: DENOSUMAB
     Indication: Osteoporosis
     Dosage: UNK
     Route: 065
     Dates: start: 20190612

REACTIONS (5)
  - Lithiasis [Recovered/Resolved]
  - Dehydration [Recovered/Resolved]
  - Vascular calcification [Recovered/Resolved]
  - Physical deconditioning [Unknown]
  - Blood calcium increased [Recovered/Resolved]
